FAERS Safety Report 6160606-9 (Version None)
Quarter: 2009Q2

REPORT INFORMATION
  Report Type: 
  Country: None (occurrence: None)
  Receive Date: 20090420
  Receipt Date: 20090416
  Transmission Date: 20091009
  Serious: No
  Sender: FDA-Public Use
  Company Number: US-B.I. PHARMACEUTICALS,INC./RIDGEFIELD-2007-BP-25036BP

PATIENT
  Sex: Female

DRUGS (1)
  1. MIRAPEX [Suspect]
     Route: 048
     Dates: start: 20030101, end: 20060101

REACTIONS (2)
  - ECONOMIC PROBLEM [None]
  - PATHOLOGICAL GAMBLING [None]
